FAERS Safety Report 11269661 (Version 1)
Quarter: 2015Q3

REPORT INFORMATION
  Report Type: Spontaneous
  Country: US (occurrence: None)
  Receive Date: 20150713
  Receipt Date: 20150713
  Transmission Date: 20151125
  Serious: Yes (Other)
  Sender: FDA-Public Use
  Company Number: None

PATIENT
  Age: 28 Year
  Sex: Male
  Weight: 51.71 kg

DRUGS (1)
  1. REMICADE [Suspect]
     Active Substance: INFLIXIMAB
     Indication: CROHN^S DISEASE
     Dosage: 300MG  EVERY 8 WEEKS INTO A VEIN
     Route: 042
     Dates: start: 20150608, end: 20150706

REACTIONS (3)
  - Infusion related reaction [None]
  - Hypersensitivity [None]
  - Red man syndrome [None]

NARRATIVE: CASE EVENT DATE: 20150629
